FAERS Safety Report 10068732 (Version 3)
Quarter: 2014Q2

REPORT INFORMATION
  Report Type: Spontaneous
  Country: JP (occurrence: JP)
  Receive Date: 20140409
  Receipt Date: 20140415
  Transmission Date: 20141212
  Serious: Yes (Other)
  Sender: FDA-Public Use
  Company Number: JP-009507513-1404JPN004222

PATIENT
  Age: 91 Year
  Sex: Female

DRUGS (4)
  1. JANUVIA TABLETS 50MG [Suspect]
     Indication: DIABETES MELLITUS
     Dosage: DIVIDED DOSE FREQUENCY UNKNOWN
     Route: 048
  2. GLIMEPIRIDE [Concomitant]
     Indication: DIABETES MELLITUS
     Dosage: DIVIDED DOSE FREQUENCY UNKNOWN, FORMULATION: POR
     Route: 048
  3. LEVOFLOXACIN [Concomitant]
     Indication: PNEUMONIA
     Dosage: DIVIDED DOSE FREQUENCY UNKNOWN
     Route: 065
  4. SULFAMETHOXAZOLE (+) TRIMETHOPRIM [Concomitant]
     Indication: PNEUMONIA
     Dosage: DIVIDED DOSE FREQUENCY UNKNOWN
     Route: 065

REACTIONS (2)
  - Hypoglycaemic encephalopathy [Unknown]
  - Dyskinesia [Recovering/Resolving]
